FAERS Safety Report 25005810 (Version 1)
Quarter: 2025Q1

REPORT INFORMATION
  Report Type: Spontaneous
  Country: US (occurrence: US)
  Receive Date: 20250224
  Receipt Date: 20250224
  Transmission Date: 20250409
  Serious: No
  Sender: PFIZER
  Company Number: US-PFIZER INC-PV202500020792

PATIENT

DRUGS (2)
  1. CYTOMEL [Suspect]
     Active Substance: LIOTHYRONINE SODIUM
  2. ARMOUR THYROID [Suspect]
     Active Substance: THYROID, PORCINE

REACTIONS (2)
  - Palpitations [Unknown]
  - Arteriosclerosis [Unknown]
